FAERS Safety Report 20655522 (Version 3)
Quarter: 2022Q3

REPORT INFORMATION
  Report Type: Spontaneous
  Country: JP (occurrence: JP)
  Receive Date: 20220330
  Receipt Date: 20220824
  Transmission Date: 20221027
  Serious: Yes (Hospitalization)
  Sender: FDA-Public Use
  Company Number: JP-Eisai-202113503_LEN-EC_P_1

PATIENT
  Age: 66 Year
  Sex: Female

DRUGS (3)
  1. LENVIMA [Suspect]
     Active Substance: LENVATINIB
     Indication: Endometrial cancer
     Route: 048
     Dates: start: 202203, end: 202203
  2. LENVIMA [Suspect]
     Active Substance: LENVATINIB
     Route: 048
     Dates: start: 202204, end: 2022
  3. KEYTRUDA [Concomitant]
     Active Substance: PEMBROLIZUMAB
     Indication: Endometrial cancer
     Route: 041
     Dates: start: 202203, end: 2022

REACTIONS (5)
  - Cardiac failure [Recovering/Resolving]
  - Hypertension [Unknown]
  - Diarrhoea [Unknown]
  - Nausea [Unknown]
  - Malaise [Unknown]

NARRATIVE: CASE EVENT DATE: 20220301
